FAERS Safety Report 12594169 (Version 1)
Quarter: 2016Q3

REPORT INFORMATION
  Report Type: Spontaneous
  Country: US (occurrence: US)
  Receive Date: 20160726
  Receipt Date: 20160726
  Transmission Date: 20161109
  Serious: Yes (Hospitalization)
  Sender: FDA-Public Use
  Company Number: US-UNITED THERAPEUTICS-UNT-2015-016278

PATIENT
  Age: 8 Year
  Sex: Female
  Weight: 26.3 kg

DRUGS (3)
  1. REMODULIN [Suspect]
     Active Substance: TREPROSTINIL
     Dosage: 0.115 ?G/KG, CONTINUING
     Route: 041
  2. TRACLEER [Concomitant]
     Active Substance: BOSENTAN
     Indication: PRODUCT USED FOR UNKNOWN INDICATION
  3. REMODULIN [Suspect]
     Active Substance: TREPROSTINIL
     Indication: PULMONARY HYPERTENSION
     Dosage: 0.111 ?G/KG, CONTINUING
     Route: 041
     Dates: start: 20140808

REACTIONS (4)
  - Dyspnoea [Unknown]
  - Nasal injury [Unknown]
  - Angina pectoris [Unknown]
  - Syncope [Unknown]

NARRATIVE: CASE EVENT DATE: 2015
